FAERS Safety Report 12834587 (Version 2)
Quarter: 2016Q4

REPORT INFORMATION
  Report Type: Spontaneous
  Country: US (occurrence: US)
  Receive Date: 20161010
  Receipt Date: 20161129
  Transmission Date: 20170207
  Serious: Yes (Other)
  Sender: FDA-Public Use
  Company Number: US-PFIZER INC-2016459385

PATIENT
  Age: 10 Year
  Sex: Male

DRUGS (3)
  1. CRIZOTINIB [Suspect]
     Active Substance: CRIZOTINIB
     Indication: UNDIFFERENTIATED SARCOMA
     Dosage: UNK
     Dates: start: 20160420
  2. TOPOTECAN [Suspect]
     Active Substance: TOPOTECAN HYDROCHLORIDE
     Indication: UNDIFFERENTIATED SARCOMA
     Dosage: UNK
     Dates: start: 20160420
  3. CYCLOPHOSPHAMIDE. [Suspect]
     Active Substance: CYCLOPHOSPHAMIDE
     Indication: UNDIFFERENTIATED SARCOMA
     Dosage: UNK
     Dates: start: 20160420

REACTIONS (24)
  - Erythema [Unknown]
  - Sleep apnoea syndrome [Unknown]
  - Secretion discharge [Unknown]
  - Pruritus [Unknown]
  - Hypoxia [Unknown]
  - Product use issue [Unknown]
  - Ear pain [Unknown]
  - Tongue discolouration [Unknown]
  - Sepsis [Unknown]
  - Oedema [Unknown]
  - Neutropenia [Unknown]
  - Decreased appetite [Unknown]
  - Skin toxicity [Recovered/Resolved]
  - Obstructive airways disorder [Unknown]
  - Condition aggravated [Unknown]
  - Oral pain [Recovered/Resolved]
  - Platelet count decreased [Recovering/Resolving]
  - Cough [Recovered/Resolved]
  - Mucosal inflammation [Unknown]
  - Gastrointestinal disorder [Unknown]
  - Neutrophil count decreased [Recovering/Resolving]
  - Dysphagia [Unknown]
  - Candida infection [Unknown]
  - Ephelides [Unknown]

NARRATIVE: CASE EVENT DATE: 20160809
